FAERS Safety Report 8204350-2 (Version None)
Quarter: 2012Q1

REPORT INFORMATION
  Report Type: 
  Country: None (occurrence: None)
  Receive Date: 20120227
  Receipt Date: 20120105
  Transmission Date: 20120608
  Serious: No
  Sender: FDA-Public Use
  Company Number: 342696

PATIENT
  Age: 46 Year
  Sex: Female

DRUGS (1)
  1. VICTOZA [Suspect]
     Indication: INSULIN RESISTANT DIABETES
     Dosage: SUBCUTANEOUS
     Route: 058

REACTIONS (2)
  - DRUG INEFFECTIVE [None]
  - INCREASED APPETITE [None]
